FAERS Safety Report 17730084 (Version 1)
Quarter: 2020Q2

REPORT INFORMATION
  Report Type: Spontaneous
  Country: US (occurrence: US)
  Receive Date: 20200430
  Receipt Date: 20200430
  Transmission Date: 20200714
  Serious: Yes (Hospitalization)
  Sender: FDA-Public Use
  Company Number: US-ASSERTIO THERAPEUTICS, INC.-US-2020DEP000196

PATIENT
  Age: 64 Year
  Sex: Female

DRUGS (1)
  1. ZIPSOR [Suspect]
     Active Substance: DICLOFENAC POTASSIUM
     Indication: ARTHRALGIA
     Dosage: 25 MG, TAKE ONE CAPSULE BY MOUTH TWICE DAILY WITH FOOD OR MILK AS NEEDED
     Route: 048

REACTIONS (2)
  - Gallbladder operation [Unknown]
  - Product dose omission [Unknown]

NARRATIVE: CASE EVENT DATE: 20200402
